FAERS Safety Report 6981267-2 (Version None)
Quarter: 2010Q3

REPORT INFORMATION
  Report Type: 
  Country: None (occurrence: None)
  Receive Date: 20100825
  Receipt Date: 20100105
  Transmission Date: 20110219
  Serious: Yes (Hospitalization)
  Sender: FDA-Public Use
  Company Number: 10US001238

PATIENT
  Age: 104 Year

DRUGS (2)
  1. PEXEVA [Suspect]
     Indication: PRODUCT USED FOR UNKNOWN INDICATION
  2. COREG [Concomitant]

REACTIONS (2)
  - LIVER FUNCTION TEST ABNORMAL [None]
  - VOMITING [None]
